FAERS Safety Report 9687097 (Version 1)
Quarter: 2013Q4

REPORT INFORMATION
  Report Type: Spontaneous
  Country: TW (occurrence: TW)
  Receive Date: 20131113
  Receipt Date: 20131113
  Transmission Date: 20140711
  Serious: Yes (Other)
  Sender: FDA-Public Use
  Company Number: ALCN2013TW005599

PATIENT
  Age: 8 Year
  Sex: Male

DRUGS (2)
  1. DEXAMETHASONE [Suspect]
     Indication: CORNEAL DEPOSITS
     Dosage: UNK
     Route: 047
     Dates: start: 20070320
  2. LEVOCETIRIZINE [Concomitant]
     Dosage: UNK
     Route: 048
     Dates: start: 20070320

REACTIONS (2)
  - Corneal opacity [Unknown]
  - Drug ineffective [Unknown]
